FAERS Safety Report 5905164-6 (Version None)
Quarter: 2008Q4

REPORT INFORMATION
  Report Type: 
  Country: None (occurrence: None)
  Receive Date: 20081001
  Receipt Date: 20080923
  Transmission Date: 20090506
  Serious: Yes (Hospitalization, Other)
  Sender: FDA-Public Use
  Company Number: BR-ABBOTT-08P-020-0459405-00

PATIENT
  Sex: Male
  Weight: 44 kg

DRUGS (10)
  1. HUMIRA [Suspect]
     Indication: JUVENILE ARTHRITIS
     Route: 058
     Dates: start: 20030401, end: 20040101
  2. HUMIRA [Suspect]
     Dates: start: 20080301, end: 20080530
  3. HUMIRA [Suspect]
  4. UNKNOWN ANTIINFLAMMATORIES [Interacting]
     Indication: DRUG USE FOR UNKNOWN INDICATION
  5. KETOPROFEN [Concomitant]
     Indication: ANALGESIA
  6. KETOPROFEN [Concomitant]
     Indication: JUVENILE ARTHRITIS
  7. DIPYRONE (NOVALGINA) [Concomitant]
     Indication: PAIN
  8. TRAMADOL HCL [Concomitant]
     Indication: DRUG USE FOR UNKNOWN INDICATION
  9. RITUXIMAB [Concomitant]
     Indication: DRUG USE FOR UNKNOWN INDICATION
  10. CORTICOID [Concomitant]
     Indication: DRUG USE FOR UNKNOWN INDICATION

REACTIONS (11)
  - ANAEMIA [None]
  - DEVICE FAILURE [None]
  - DISLOCATION OF JOINT PROSTHESIS [None]
  - DIZZINESS [None]
  - FALL [None]
  - FEMUR FRACTURE [None]
  - JOINT ARTHROPLASTY [None]
  - PAIN [None]
  - PROSTHESIS IMPLANTATION [None]
  - RENAL FAILURE [None]
  - VOMITING [None]
